FAERS Safety Report 9229484 (Version 2)
Quarter: 2013Q2

REPORT INFORMATION
  Report Type: Spontaneous
  Country: JP (occurrence: JP)
  Receive Date: 20130412
  Receipt Date: 20130520
  Transmission Date: 20140414
  Serious: Yes (Other)
  Sender: FDA-Public Use
  Company Number: JP-B.I. PHARMACEUTICALS,INC./RIDGEFIELD-2013-BI-09502GD

PATIENT
  Age: 4 Decade
  Sex: Male

DRUGS (7)
  1. TIOTROPIUM [Suspect]
     Indication: ASTHMA
     Route: 055
  2. OXITROPIUM [Suspect]
     Indication: ASTHMA
     Route: 055
  3. OXITROPIUM [Suspect]
     Route: 055
  4. BUDESONIDE [Suspect]
     Indication: ASTHMA
     Route: 055
  5. LANSOPRAZOLE [Suspect]
     Indication: ASTHMA
  6. PROCATEROL [Suspect]
     Indication: ASTHMA
     Route: 055
  7. PROCATEROL [Suspect]
     Route: 055

REACTIONS (2)
  - Asthma [Recovered/Resolved]
  - Drug ineffective [Recovered/Resolved]
